FAERS Safety Report 6122245-5 (Version None)
Quarter: 2009Q1

REPORT INFORMATION
  Report Type: 
  Country: None (occurrence: None)
  Receive Date: 20090316
  Receipt Date: 20090316
  Transmission Date: 20090719
  Serious: Yes (Life-Threatening, Hospitalization)
  Sender: FDA-Public Use
  Company Number: None

PATIENT
  Age: 61 Year
  Sex: Female
  Weight: 77.1115 kg

DRUGS (2)
  1. PHENERGAN [Suspect]
     Indication: INFLUENZA
     Dates: start: 20080906, end: 20080907
  2. PHENERGAN [Suspect]
     Indication: NAUSEA
     Dates: start: 20080906, end: 20080907

REACTIONS (10)
  - AMNESIA [None]
  - BLOOD PRESSURE DECREASED [None]
  - COMA [None]
  - DIARRHOEA [None]
  - DRUG HYPERSENSITIVITY [None]
  - HEART RATE INCREASED [None]
  - HYPERTHERMIA MALIGNANT [None]
  - HYPOAESTHESIA [None]
  - HYPOVENTILATION [None]
  - PULMONARY OEDEMA [None]
